FAERS Safety Report 5650483-4 (Version None)
Quarter: 2008Q1

REPORT INFORMATION
  Report Type: 
  Country: None (occurrence: None)
  Receive Date: 20080304
  Receipt Date: 20080304
  Transmission Date: 20080703
  Serious: Yes (Hospitalization)
  Sender: FDA-Public Use
  Company Number: None

PATIENT
  Age: 82 Year
  Sex: Male
  Weight: 122.4 kg

DRUGS (1)
  1. FELODIPINE [Suspect]
     Dosage: 2.5MG EVERY DAY PO
     Route: 048
     Dates: start: 20061207, end: 20070212

REACTIONS (8)
  - ABDOMINAL DISTENSION [None]
  - BACK INJURY [None]
  - BALANCE DISORDER [None]
  - CONDITION AGGRAVATED [None]
  - FALL [None]
  - HYPOTENSION [None]
  - PITTING OEDEMA [None]
  - RENAL IMPAIRMENT [None]
